FAERS Safety Report 7023849-8 (Version None)
Quarter: 2010Q4

REPORT INFORMATION
  Report Type: 
  Country: None (occurrence: None)
  Receive Date: 20101001
  Receipt Date: 20100921
  Transmission Date: 20110411
  Serious: Yes (Other)
  Sender: FDA-Public Use
  Company Number: RU-JNJFOC-20100906993

PATIENT
  Age: 6 Year
  Sex: Female
  Weight: 21 kg

DRUGS (1)
  1. REMICADE [Suspect]
     Indication: JUVENILE ARTHRITIS
     Route: 042

REACTIONS (6)
  - BODY TEMPERATURE INCREASED [None]
  - ERYTHEMA [None]
  - INFUSION RELATED REACTION [None]
  - NAUSEA [None]
  - RASH [None]
  - VOMITING [None]
